FAERS Safety Report 4591510-5 (Version None)
Quarter: 2005Q1

REPORT INFORMATION
  Report Type: 
  Country: None (occurrence: None)
  Receive Date: 20050222
  Receipt Date: 20050209
  Transmission Date: 20050727
  Serious: Yes (Hospitalization, Other)
  Sender: FDA-Public Use
  Company Number: 2005028116

PATIENT
  Age: 68 Year
  Sex: Male
  Weight: 86.637 kg

DRUGS (13)
  1. BEXTRA [Suspect]
     Indication: ARTHRITIS
     Dosage: (10 MG),ORAL
     Route: 048
     Dates: start: 20020101
  2. METOLAZONE [Concomitant]
  3. AMIODARONE HCL [Concomitant]
  4. POTASSIUM CHLORIDE [Concomitant]
  5. WARFARIN SODIUM [Concomitant]
  6. ADVICOR - SLOW RELEASE (LOVASTATIN, NICOTINIC ACID) [Concomitant]
  7. SALBUTAMOL (SALBUTAMOL) [Concomitant]
  8. ALPRAZOLAM [Concomitant]
  9. ATENOLOL [Concomitant]
  10. AMLODIPINE BESYLATE [Concomitant]
  11. AMLODIPINE [Concomitant]
  12. FUROSEMIDE [Concomitant]
  13. METFORMIN HCL [Concomitant]

REACTIONS (4)
  - CARDIAC PROCEDURE COMPLICATION [None]
  - MUSCLE TWITCHING [None]
  - MYOCARDIAL INFARCTION [None]
  - TREATMENT NONCOMPLIANCE [None]
